FAERS Safety Report 19145118 (Version 5)
Quarter: 2022Q1

REPORT INFORMATION
  Report Type: Spontaneous
  Country: DE (occurrence: DE)
  Receive Date: 20210416
  Receipt Date: 20220127
  Transmission Date: 20220423
  Serious: Yes (Hospitalization, Disabling, Other)
  Sender: FDA-Public Use
  Company Number: None

PATIENT
  Age: 38 Year
  Sex: Male
  Weight: 80 kg

DRUGS (5)
  1. CIPROFLOXACIN HYDROCHLORIDE [Suspect]
     Active Substance: CIPROFLOXACIN HYDROCHLORIDE
     Indication: Prostatitis
     Dosage: 500 MG, QD (2 X250MG)
     Route: 048
     Dates: start: 20200715, end: 20200719
  2. BETAMETHASONE [Concomitant]
     Active Substance: BETAMETHASONE
     Indication: Product used for unknown indication
     Dosage: UNK
     Route: 065
  3. RAMIPRIL [Concomitant]
     Active Substance: RAMIPRIL
     Indication: Product used for unknown indication
     Dosage: 5 MG, QD (2.5 MG 1-0-1-0)
     Route: 065
  4. QUETIAPIN NEURAXPHARM [Concomitant]
     Indication: Product used for unknown indication
     Dosage: 25 MG, QD (0-0-0-1)
     Route: 065
  5. ROSUVASTATIN [Concomitant]
     Active Substance: ROSUVASTATIN
     Indication: Product used for unknown indication
     Dosage: 5 MG, QD (0-0-1)
     Route: 065

REACTIONS (10)
  - Haematochezia [Unknown]
  - Neuralgia [Recovered/Resolved with Sequelae]
  - Abdominal discomfort [Unknown]
  - Pain in extremity [Unknown]
  - Pain in extremity [Unknown]
  - Pain in extremity [Recovered/Resolved with Sequelae]
  - Myalgia [Recovered/Resolved with Sequelae]
  - Arthralgia [Unknown]
  - Pain [Recovered/Resolved with Sequelae]
  - Penile pain [Unknown]

NARRATIVE: CASE EVENT DATE: 20200101
